FAERS Safety Report 18055567 (Version 6)
Quarter: 2020Q4

REPORT INFORMATION
  Report Type: Report from Study
  Country: US (occurrence: US)
  Receive Date: 20200722
  Receipt Date: 20201028
  Transmission Date: 20210113
  Serious: Yes (Other)
  Sender: FDA-Public Use
  Company Number: US-GLAXOSMITHKLINE-US2020AMR084071

PATIENT
  Age: 87 Year
  Sex: Female

DRUGS (9)
  1. NIRAPARIB [Suspect]
     Active Substance: NIRAPARIB
     Dosage: 100 MG, QD
     Route: 065
     Dates: start: 20200609
  2. NIRAPARIB [Suspect]
     Active Substance: NIRAPARIB
     Dosage: 100 MG, QD
     Route: 065
     Dates: start: 202006
  3. NIRAPARIB [Suspect]
     Active Substance: NIRAPARIB
     Dosage: 100 MG, QD
     Route: 065
  4. VITAMIN C [Concomitant]
     Active Substance: ASCORBIC ACID
     Indication: PRODUCT USED FOR UNKNOWN INDICATION
     Dosage: 500 MG
  5. XARELTO [Concomitant]
     Active Substance: RIVAROXABAN
     Indication: PRODUCT USED FOR UNKNOWN INDICATION
     Dosage: 15 DF, BID
  6. XARELTO [Concomitant]
     Active Substance: RIVAROXABAN
     Dosage: 20 MG, QD (1 AM)
  7. NIRAPARIB [Suspect]
     Active Substance: NIRAPARIB
     Dosage: 100 MG, QD
     Route: 065
  8. ACIDOPHILUS [Concomitant]
     Active Substance: LACTOBACILLUS ACIDOPHILUS
     Indication: PRODUCT USED FOR UNKNOWN INDICATION
     Dosage: 1 DF, QD
  9. NIRAPARIB [Suspect]
     Active Substance: NIRAPARIB
     Indication: MALIGNANT PERITONEAL NEOPLASM
     Dosage: 200 MG, QD (HS WITHOUT FOOD)
     Route: 065
     Dates: start: 20200504, end: 20200526

REACTIONS (11)
  - Pelvic venous thrombosis [Unknown]
  - Nocturia [Unknown]
  - Carbohydrate antigen 125 increased [Not Recovered/Not Resolved]
  - Dysuria [Not Recovered/Not Resolved]
  - Urinary tract infection [Unknown]
  - Platelet count decreased [Not Recovered/Not Resolved]
  - Insomnia [Not Recovered/Not Resolved]
  - Fatigue [Not Recovered/Not Resolved]
  - Underdose [Unknown]
  - Contusion [Unknown]
  - Constipation [Not Recovered/Not Resolved]

NARRATIVE: CASE EVENT DATE: 20200819
